FAERS Safety Report 9580165 (Version 2)
Quarter: 2013Q4

REPORT INFORMATION
  Report Type: Spontaneous
  Country: US (occurrence: US)
  Receive Date: 20131002
  Receipt Date: 20131218
  Transmission Date: 20140711
  Serious: No
  Sender: FDA-Public Use
  Company Number: US-009507513-1309USA004501

PATIENT
  Sex: Female

DRUGS (1)
  1. AZASITE [Suspect]
     Indication: BLEPHARITIS
     Dosage: ONE DROP IN THE LEFT EYE, TWICE DAILY
     Route: 047
     Dates: start: 20130827, end: 20130907

REACTIONS (4)
  - Blister [Recovered/Resolved]
  - Off label use [Unknown]
  - Inappropriate schedule of drug administration [Unknown]
  - Product quality issue [Unknown]
